FAERS Safety Report 18688464 (Version 1)
Quarter: 2020Q4

REPORT INFORMATION
  Report Type: Report from Study
  Country: US (occurrence: US)
  Receive Date: 20201231
  Receipt Date: 20201231
  Transmission Date: 20210114
  Serious: No
  Sender: FDA-Public Use
  Company Number: US-KYOWAKIRIN-2020BKK022758

PATIENT

DRUGS (1)
  1. CRYSVITA [Suspect]
     Active Substance: BUROSUMAB-TWZA
     Indication: HEREDITARY HYPOPHOSPHATAEMIC RICKETS
     Dosage: 70 MG, 1X/2 WEEKS
     Route: 058
     Dates: start: 20201007

REACTIONS (4)
  - Musculoskeletal discomfort [Unknown]
  - Arthralgia [Unknown]
  - Product dose omission issue [Not Recovered/Not Resolved]
  - Overweight [Unknown]

NARRATIVE: CASE EVENT DATE: 2020
